FAERS Safety Report 10861274 (Version 1)
Quarter: 2015Q1

REPORT INFORMATION
  Report Type: Spontaneous
  Country: BE (occurrence: BE)
  Receive Date: 20150224
  Receipt Date: 20150224
  Transmission Date: 20150721
  Serious: Yes (Other)
  Sender: FDA-Public Use
  Company Number: BE-JNJFOC-20150207073

PATIENT
  Age: 59 Year
  Sex: Female
  Weight: 103 kg

DRUGS (1)
  1. INVOKANA [Suspect]
     Active Substance: CANAGLIFLOZIN
     Indication: TYPE 2 DIABETES MELLITUS
     Route: 048
     Dates: start: 2015, end: 2015

REACTIONS (3)
  - Renal impairment [Unknown]
  - Musculoskeletal pain [Recovered/Resolved]
  - Back pain [Recovered/Resolved]

NARRATIVE: CASE EVENT DATE: 201501
